FAERS Safety Report 11975348 (Version 8)
Quarter: 2018Q4

REPORT INFORMATION
  Report Type: Spontaneous
  Country: US (occurrence: US)
  Receive Date: 20160128
  Receipt Date: 20181008
  Transmission Date: 20190204
  Serious: Yes (Hospitalization)
  Sender: FDA-Public Use
  Company Number: US-DSJP-DSU-2015-131863

PATIENT

DRUGS (3)
  1. BENICAR [Suspect]
     Active Substance: OLMESARTAN MEDOXOMIL
     Dosage: 40 MG, QD
     Route: 048
     Dates: start: 20091015
  2. BENICAR [Suspect]
     Active Substance: OLMESARTAN MEDOXOMIL
     Indication: HYPERTENSION
     Dosage: 20 MG, QD
     Dates: start: 20091015, end: 2014
  3. BENICAR HCT [Suspect]
     Active Substance: HYDROCHLOROTHIAZIDE\OLMESARTAN MEDOXOMIL
     Indication: HYPERTENSION
     Dosage: 40/12.5 MG, QD
     Route: 048
     Dates: start: 20091015, end: 20140505

REACTIONS (10)
  - Porcelain gallbladder [Recovered/Resolved]
  - Septic shock [Recovered/Resolved]
  - Pelvic abscess [Recovered/Resolved]
  - Colonic abscess [Unknown]
  - Constipation [Recovered/Resolved]
  - Acute kidney injury [Recovered/Resolved]
  - Cerebrovascular accident [Recovered/Resolved]
  - Hypotension [Recovered/Resolved]
  - Sprue-like enteropathy [Recovering/Resolving]
  - Hepatic steatosis [Unknown]

NARRATIVE: CASE EVENT DATE: 201402
